FAERS Safety Report 7058013-X (Version None)
Quarter: 2010Q4

REPORT INFORMATION
  Report Type: 
  Country: None (occurrence: None)
  Receive Date: 20101022
  Receipt Date: 20101014
  Transmission Date: 20110411
  Serious: Yes (Other)
  Sender: FDA-Public Use
  Company Number: PHHO2010NL15693

PATIENT
  Sex: Female
  Weight: 62 kg

DRUGS (10)
  1. STI571/CGP57148B T35717+TAB [Suspect]
     Indication: PULMONARY ARTERIAL HYPERTENSION
     Dosage: DOUBLE BLIND
     Route: 048
     Dates: start: 20100624
  2. REMODULIN [Concomitant]
  3. LASIX [Concomitant]
  4. SPIRONOLACTONE [Concomitant]
  5. THYROX [Concomitant]
  6. ACENOCOUMAROL [Concomitant]
  7. FOSAMAX [Concomitant]
  8. SILDENAFIL CITRATE [Concomitant]
  9. OXYCODONE HCL [Concomitant]
  10. NEURONTIN [Concomitant]

REACTIONS (2)
  - RETINAL DETACHMENT [None]
  - VISION BLURRED [None]
